FAERS Safety Report 16600642 (Version 1)
Quarter: 2019Q3

REPORT INFORMATION
  Report Type: Spontaneous
  Country: FR (occurrence: FR)
  Receive Date: 20190720
  Receipt Date: 20190720
  Transmission Date: 20191004
  Serious: Yes (Hospitalization)
  Sender: FDA-Public Use
  Company Number: FR-TEVA-2019-FR-1078951

PATIENT
  Age: 71 Year
  Sex: Male

DRUGS (3)
  1. LEVOFLOXACINE [Suspect]
     Active Substance: LEVOFLOXACIN
     Indication: ENDOCARDITIS
     Dosage: 1500MG PER DAY
     Route: 048
     Dates: start: 20190416, end: 20190429
  2. ORBENINE [Suspect]
     Active Substance: CLOXACILLIN SODIUM
     Indication: ENDOCARDITIS
     Dosage: 2.5GM PER 6 HR
     Route: 041
     Dates: start: 20190402, end: 20190416
  3. INNOHEP [Suspect]
     Active Substance: TINZAPARIN SODIUM
     Indication: THROMBOSIS PROPHYLAXIS
     Route: 058
     Dates: start: 20190320, end: 20190517

REACTIONS (2)
  - Liver injury [Recovering/Resolving]
  - Tendon disorder [Unknown]

NARRATIVE: CASE EVENT DATE: 201904
